FAERS Safety Report 9251576 (Version 1)
Quarter: 2013Q1

REPORT INFORMATION
  Report Type: Spontaneous
  Country: US (occurrence: None)
  Receive Date: 20130305
  Receipt Date: 20130305
  Transmission Date: 20140127
  Serious: Yes (Other)
  Sender: FDA-Public Use
  Company Number: 163-21880-12100465

PATIENT
  Age: 67 Year
  Sex: Female
  Weight: 92.99 kg

DRUGS (11)
  1. REVLIMID [Suspect]
     Indication: MYELODYSPLASTIC SYNDROME
     Dosage: 10 MG, 21 IN 28 D, PO
     Dates: start: 20120914
  2. VITAMIN E (TOCOPHEROL) [Concomitant]
  3. PROCRIT [Concomitant]
  4. ASPIRIN (ACETYLSALICYLIC ACID) [Concomitant]
  5. LISINOPRIL (LISINOPRIL) [Concomitant]
  6. CATAPRES (CLONIDINE) [Concomitant]
  7. VITAMIN D (ERGOCALCIFEROL) [Concomitant]
  8. AMLODIPINE (AMLODIPINE) [Concomitant]
  9. ACTOS (PIOGLITAZONE) [Concomitant]
  10. METFORMIN (METFORMIN) [Concomitant]
  11. ATORVASTATIN (ATORVASTATIN) [Concomitant]

REACTIONS (4)
  - Gastrooesophageal reflux disease [None]
  - Musculoskeletal pain [None]
  - Muscle spasms [None]
  - Diarrhoea [None]
